FAERS Safety Report 25484604 (Version 1)
Quarter: 2025Q2

REPORT INFORMATION
  Report Type: Spontaneous
  Country: US (occurrence: None)
  Receive Date: 20250626
  Receipt Date: 20250626
  Transmission Date: 20250717
  Serious: Yes (Hospitalization)
  Sender: FDA-CTU
  Company Number: None

PATIENT
  Age: 32 Year
  Sex: Male

DRUGS (20)
  1. TACROLIMUS [Suspect]
     Active Substance: TACROLIMUS
     Indication: Heart transplant
     Dosage: FREQUENCY : TWICE A DAY;?
     Route: 048
  2. SIROLIMUS [Suspect]
     Active Substance: SIROLIMUS
     Indication: Heart transplant
     Dosage: FREQUENCY : DAILY;?
     Route: 048
     Dates: start: 20220914
  3. TACROLIMUS [Concomitant]
     Active Substance: TACROLIMUS
     Dates: start: 20220702
  4. AMOXICILLIN [Concomitant]
     Active Substance: AMOXICILLIN
     Dates: start: 20221102
  5. ASPIRIN [Concomitant]
     Active Substance: ASPIRIN
     Dates: start: 20220616
  6. CLOPIDOGREL [Concomitant]
     Active Substance: CLOPIDOGREL BISULFATE
     Dates: start: 20220426
  7. EZETIMIBE [Concomitant]
     Active Substance: EZETIMIBE
     Dates: start: 20220111
  8. FAMOTIDINE [Concomitant]
     Active Substance: FAMOTIDINE
     Dates: start: 20250310
  9. FERROUS SULFATE [Concomitant]
     Active Substance: FERROUS SULFATE
     Dates: start: 20220401
  10. FUROSEMIDE [Concomitant]
     Active Substance: FUROSEMIDE
  11. JARDIANCE [Concomitant]
     Active Substance: EMPAGLIFLOZIN
     Dates: start: 20240808
  12. LOSARTAN [Concomitant]
     Active Substance: LOSARTAN
     Dates: start: 20241119
  13. Mag-Oxide 400mg [Concomitant]
     Dates: start: 20220914
  14. METFORMIN [Concomitant]
     Active Substance: METFORMIN HYDROCHLORIDE
     Dates: start: 20230310
  15. METOPROLOL SUCCINATE [Concomitant]
     Active Substance: METOPROLOL SUCCINATE
     Dates: start: 20221018
  16. OMEPRAZOLE [Concomitant]
     Active Substance: OMEPRAZOLE
     Dates: start: 20220914
  17. OXYCODONE [Concomitant]
     Active Substance: OXYCODONE
     Dates: start: 20240312
  18. PREDNISONE [Concomitant]
     Active Substance: PREDNISONE
     Dates: start: 20220520
  19. ROSUVASTATIN [Concomitant]
     Active Substance: ROSUVASTATIN
     Dates: start: 20220401
  20. VASCEPA [Concomitant]
     Active Substance: ICOSAPENT ETHYL
     Dates: start: 20230228

REACTIONS (2)
  - Lung disorder [None]
  - Pulmonary oedema [None]

NARRATIVE: CASE EVENT DATE: 20250620
